FAERS Safety Report 20908021 (Version 2)
Quarter: 2022Q3

REPORT INFORMATION
  Report Type: Report from Study
  Country: US (occurrence: US)
  Receive Date: 20220602
  Receipt Date: 20220809
  Transmission Date: 20221027
  Serious: Yes (Death, Other)
  Sender: FDA-Public Use
  Company Number: US-GILEAD-2022-0583855

PATIENT
  Age: 56 Year
  Sex: Male
  Weight: 108.8 kg

DRUGS (7)
  1. REMDESIVIR [Suspect]
     Active Substance: REMDESIVIR
     Indication: COVID-19
     Dosage: 200 MG, QD
     Route: 042
     Dates: start: 20210325, end: 20210325
  2. REMDESIVIR [Suspect]
     Active Substance: REMDESIVIR
     Dosage: 100 MG, QD
     Route: 042
     Dates: start: 20210326, end: 20210326
  3. DORNASE ALFA [Suspect]
     Active Substance: DORNASE ALFA
     Indication: COVID-19
     Dosage: 10 MG, BID
     Route: 055
     Dates: start: 20210327, end: 20210329
  4. ATORVASTATIN [Concomitant]
     Active Substance: ATORVASTATIN
     Indication: Hyperlipidaemia
     Dosage: 40 MG
     Route: 048
     Dates: start: 20210326
  5. BRIVARACETAM [Concomitant]
     Active Substance: BRIVARACETAM
     Indication: Seizure
     Dosage: 150 MG, BID
     Route: 048
     Dates: start: 20201215
  6. ESOMEPRAZOLE [Concomitant]
     Active Substance: ESOMEPRAZOLE
     Dosage: 40 MG, QD
     Route: 050
     Dates: start: 20210326
  7. HEPARIN [Concomitant]
     Active Substance: HEPARIN SODIUM
     Dosage: 5000 IU
     Route: 058
     Dates: start: 20210324

REACTIONS (2)
  - Multiple organ dysfunction syndrome [Fatal]
  - Blood creatinine increased [Not Recovered/Not Resolved]

NARRATIVE: CASE EVENT DATE: 20210301
